FAERS Safety Report 7758557-9 (Version None)
Quarter: 2011Q3

REPORT INFORMATION
  Report Type: 
  Country: None (occurrence: None)
  Receive Date: 20110825
  Receipt Date: 20110628
  Transmission Date: 20111222
  Serious: Yes (Hospitalization)
  Sender: FDA-Public Use
  Company Number: 330851

PATIENT
  Age: 54 Year
  Sex: Female
  Weight: 99.3 kg

DRUGS (5)
  1. VICTOZA [Suspect]
     Indication: TYPE 2 DIABETES MELLITUS
     Dosage: 1.8 MG, QD, SUBCUTANEOUS
     Route: 058
     Dates: start: 20110101, end: 20110610
  2. VICTOZA [Suspect]
     Indication: WEIGHT CONTROL
     Dosage: 1.8 MG, QD, SUBCUTANEOUS
     Route: 058
     Dates: start: 20110101, end: 20110610
  3. NOVOLOG [Concomitant]
  4. LANTUS [Concomitant]
  5. JANUVIA [Concomitant]

REACTIONS (1)
  - PANCREATITIS [None]
